FAERS Safety Report 7097817-4 (Version None)
Quarter: 2010Q4

REPORT INFORMATION
  Report Type: 
  Country: None (occurrence: None)
  Receive Date: 20101103
  Receipt Date: 20101021
  Transmission Date: 20110411
  Serious: Yes (Hospitalization)
  Sender: FDA-Public Use
  Company Number: TPA2010A05531

PATIENT
  Age: 65 Year
  Sex: Male
  Weight: 113.3 kg

DRUGS (4)
  1. DEXILANT [Suspect]
     Indication: ABDOMINAL PAIN
     Dosage: 60 MG, 1 IN 1 D, PER ORAL
     Route: 048
     Dates: start: 20101011, end: 20101012
  2. LABETALOL HCL [Concomitant]
  3. LEVITRA [Concomitant]
  4. RELAFEN [Concomitant]

REACTIONS (1)
  - MENTAL STATUS CHANGES [None]
